FAERS Safety Report 17073963 (Version 1)
Quarter: 2019Q4

REPORT INFORMATION
  Report Type: Report from Study
  Country: US (occurrence: US)
  Receive Date: 20191126
  Receipt Date: 20191126
  Transmission Date: 20200122
  Serious: Yes (Death)
  Sender: FDA-Public Use
  Company Number: US-ASTRAZENECA-2019SF68177

PATIENT
  Sex: Female

DRUGS (6)
  1. FOLIC ACID. [Concomitant]
     Active Substance: FOLIC ACID
  2. ZOMETA [Concomitant]
     Active Substance: ZOLEDRONIC ACID
  3. IRESSA [Suspect]
     Active Substance: GEFITINIB
     Indication: LUNG CARCINOMA CELL TYPE UNSPECIFIED STAGE 0
     Route: 048
     Dates: start: 20171108
  4. MULTI FOR HER [Concomitant]
  5. CALCIUM + D [Concomitant]
     Active Substance: CALCIUM\VITAMIN D
  6. IRESSA [Suspect]
     Active Substance: GEFITINIB
     Indication: LUNG CARCINOMA CELL TYPE UNSPECIFIED STAGE 0
     Route: 048
     Dates: start: 20171108

REACTIONS (1)
  - Death [Fatal]
